FAERS Safety Report 13158061 (Version 1)
Quarter: 2017Q1

REPORT INFORMATION
  Report Type: Spontaneous
  Country: US (occurrence: US)
  Receive Date: 20170124
  Receipt Date: 20170124
  Transmission Date: 20170428
  Serious: Yes (Life-Threatening, Hospitalization, Disabling)
  Sender: FDA-Public Use
  Company Number: None

PATIENT
  Age: 73 Year
  Sex: Male
  Weight: 65.4 kg

DRUGS (1)
  1. OPDIVO [Suspect]
     Active Substance: NIVOLUMAB
     Indication: RENAL CELL CARCINOMA
     Dosage: ?          OTHER FREQUENCY:EVERY 2 WEEKS;?
     Route: 041
     Dates: start: 20160422, end: 20160506

REACTIONS (8)
  - Neurological symptom [None]
  - Hepatotoxicity [None]
  - Fatigue [None]
  - Asthenia [None]
  - Rhabdomyolysis [None]
  - Quadriplegia [None]
  - Acute respiratory failure [None]
  - Myasthenia gravis [None]

NARRATIVE: CASE EVENT DATE: 20160506
